FAERS Safety Report 9934664 (Version 2)
Quarter: 2014Q1

REPORT INFORMATION
  Report Type: Report from Study
  Country: JP (occurrence: JP)
  Receive Date: 20140228
  Receipt Date: 20140228
  Transmission Date: 20141002
  Serious: Yes (Hospitalization)
  Sender: FDA-Public Use
  Company Number: JP-EISAI INC-E2020-12806-SOL-JP

PATIENT
  Age: 80 Year
  Sex: Female

DRUGS (6)
  1. ARICEPT [Suspect]
     Indication: DEMENTIA ALZHEIMER^S TYPE
     Route: 048
     Dates: start: 20100825, end: 20101112
  2. ARICEPT [Suspect]
     Route: 048
     Dates: start: 20101113, end: 20121225
  3. MEMARY [Suspect]
     Indication: PRODUCT USED FOR UNKNOWN INDICATION
     Dosage: 10 MG DAILY
     Route: 048
     Dates: start: 20120822, end: 20121226
  4. PLAVIX [Concomitant]
     Dosage: 50 MG DAILY
     Route: 048
     Dates: start: 20080531
  5. FOSAMAC [Concomitant]
     Dosage: 35 MG DAILY
     Route: 048
     Dates: start: 20071007
  6. MYSLEE [Concomitant]
     Indication: INSOMNIA
     Dosage: 10 MG DAILY
     Route: 048
     Dates: start: 20110609, end: 20121226

REACTIONS (1)
  - Altered state of consciousness [Recovered/Resolved]
